FAERS Safety Report 8352278-X (Version None)
Quarter: 2012Q2

REPORT INFORMATION
  Report Type: 
  Country: None (occurrence: None)
  Receive Date: 20120511
  Receipt Date: 20120503
  Transmission Date: 20120825
  Serious: Yes (Other)
  Sender: FDA-Public Use
  Company Number: IT-JNJFOC-20120313136

PATIENT

DRUGS (8)
  1. DOXORUBICIN HCL [Suspect]
     Indication: HODGKIN'S DISEASE
     Route: 042
  2. VINCRISTINE [Suspect]
     Indication: HODGKIN'S DISEASE
     Route: 065
  3. PREDNISONE [Suspect]
     Indication: HODGKIN'S DISEASE
     Route: 065
  4. BLEOMYCIN SULFATE [Suspect]
     Indication: HODGKIN'S DISEASE
     Route: 065
  5. ETOPOSIDE [Suspect]
     Indication: HODGKIN'S DISEASE
     Route: 065
  6. DOXORUBICIN HCL [Suspect]
     Route: 065
  7. VINBLASTINE SULFATE [Suspect]
     Indication: HODGKIN'S DISEASE
     Route: 065
  8. MUSTARGEN [Suspect]
     Indication: HODGKIN'S DISEASE
     Route: 065

REACTIONS (1)
  - CHRONIC LYMPHOCYTIC LEUKAEMIA [None]
